APPROVED DRUG PRODUCT: PIRFENIDONE
Active Ingredient: PIRFENIDONE
Strength: 267MG
Dosage Form/Route: CAPSULE;ORAL
Application: A212600 | Product #001 | TE Code: AB
Applicant: SANDOZ INC
Approved: Jun 13, 2022 | RLD: No | RS: No | Type: RX